FAERS Safety Report 8909675 (Version 3)
Quarter: 2013Q1

REPORT INFORMATION
  Report Type: Spontaneous
  Country: US (occurrence: US)
  Receive Date: 20121115
  Receipt Date: 20130117
  Transmission Date: 20140127
  Serious: Yes (Death, Other)
  Sender: FDA-Public Use
  Company Number: US-BAYER-2012-116481

PATIENT
  Age: 35 Year
  Sex: Female
  Weight: 112.93 kg

DRUGS (7)
  1. YAZ [Suspect]
  2. ALBUTEROL [Concomitant]
  3. ADVAIR [Concomitant]
  4. AMBIEN [Concomitant]
  5. LEXAPRO [Concomitant]
  6. PROVENTIL [Concomitant]
  7. PREDNISONE [Concomitant]
     Dosage: 60 MG, UNK
     Route: 048
     Dates: start: 20101008

REACTIONS (2)
  - Pulmonary embolism [Fatal]
  - Deep vein thrombosis [None]
